FAERS Safety Report 24250019 (Version 1)
Quarter: 2024Q3

REPORT INFORMATION
  Report Type: Report from Study
  Country: US (occurrence: US)
  Receive Date: 20240826
  Receipt Date: 20240826
  Transmission Date: 20241016
  Serious: Yes (Other)
  Sender: ABBVIE
  Company Number: US-ABBVIE-5891137

PATIENT
  Age: 66 Year
  Sex: Male

DRUGS (1)
  1. RINVOQ [Suspect]
     Active Substance: UPADACITINIB
     Indication: Rheumatoid arthritis
     Route: 048

REACTIONS (11)
  - Peripheral venous disease [Unknown]
  - Musculoskeletal stiffness [Unknown]
  - Neck pain [Not Recovered/Not Resolved]
  - Pruritus [Unknown]
  - Increased tendency to bruise [Unknown]
  - Wound [Unknown]
  - Ulcer [Unknown]
  - Pain in extremity [Unknown]
  - Varicose vein [Unknown]
  - Impaired healing [Unknown]
  - Fatigue [Unknown]

NARRATIVE: CASE EVENT DATE: 20240819
